FAERS Safety Report 16079694 (Version 1)
Quarter: 2019Q1

REPORT INFORMATION
  Report Type: Spontaneous
  Country: CA (occurrence: CA)
  Receive Date: 20190315
  Receipt Date: 20190315
  Transmission Date: 20190418
  Serious: Yes (Other)
  Sender: FDA-Public Use
  Company Number: CA-TEVA-2019-CA-1024324

PATIENT
  Age: 32 Year
  Sex: Female

DRUGS (7)
  1. MESALAZINE [Concomitant]
     Active Substance: MESALAMINE
     Route: 054
  2. MESALAZINE [Concomitant]
     Active Substance: MESALAMINE
     Dosage: 4 MILLIGRAM DAILY;
     Route: 048
  3. METHOTREXATE. [Suspect]
     Active Substance: METHOTREXATE
     Indication: PRODUCT USED FOR UNKNOWN INDICATION
     Dosage: 2.1429 MILLIGRAM DAILY;
     Route: 065
  4. FOLIC ACID. [Concomitant]
     Active Substance: FOLIC ACID
  5. HUMIRA [Concomitant]
     Active Substance: ADALIMUMAB
     Indication: COLITIS ULCERATIVE
  6. MESALAZINE [Concomitant]
     Active Substance: MESALAMINE
     Route: 048
  7. METHOTREXATE. [Suspect]
     Active Substance: METHOTREXATE
     Route: 048

REACTIONS (5)
  - Arthritis [Unknown]
  - Disease recurrence [Unknown]
  - Colitis ulcerative [Unknown]
  - Condition aggravated [Unknown]
  - Impaired quality of life [Unknown]
